FAERS Safety Report 4513927-7 (Version None)
Quarter: 2004Q4

REPORT INFORMATION
  Report Type: 
  Country: None (occurrence: None)
  Receive Date: 20041130
  Receipt Date: 20040930
  Transmission Date: 20050328
  Serious: No
  Sender: FDA-Public Use
  Company Number: US-GLAXOSMITHKLINE-A0527981A

PATIENT
  Age: 37 Year
  Sex: Male

DRUGS (2)
  1. WELLBUTRIN XL [Suspect]
     Indication: ANGER
     Dosage: 300MG PER DAY
     Route: 048
     Dates: start: 20040920, end: 20040928
  2. NO CONCURRENT MEDICATION [Concomitant]

REACTIONS (4)
  - CHEST DISCOMFORT [None]
  - PRURITUS [None]
  - THROAT TIGHTNESS [None]
  - URTICARIA [None]
